FAERS Safety Report 5644442-5 (Version None)
Quarter: 2008Q1

REPORT INFORMATION
  Report Type: 
  Country: None (occurrence: None)
  Receive Date: 20080229
  Receipt Date: 20080215
  Transmission Date: 20080703
  Serious: Yes (Hospitalization)
  Sender: FDA-Public Use
  Company Number: NO-ELI_LILLY_AND_COMPANY-NO200802000098

PATIENT
  Sex: Male

DRUGS (3)
  1. HUMALOG [Suspect]
     Dosage: 8 U, DAILY (1/D)
     Route: 065
     Dates: start: 20070801, end: 20071001
  2. HUMULIN N [Suspect]
     Dosage: 16 U, DAILY (1/D)
     Route: 065
     Dates: start: 20070801, end: 20071001
  3. METFORMIN HCL [Concomitant]

REACTIONS (6)
  - CONJUNCTIVITIS ALLERGIC [None]
  - DIZZINESS [None]
  - ERYTHEMA [None]
  - FEELING HOT [None]
  - HYPOAESTHESIA ORAL [None]
  - SYNCOPE [None]
